FAERS Safety Report 7062243-0 (Version None)
Quarter: 2010Q4

REPORT INFORMATION
  Report Type: 
  Country: None (occurrence: None)
  Receive Date: 20101026
  Receipt Date: 20101015
  Transmission Date: 20110411
  Serious: Yes (Life-Threatening, Hospitalization)
  Sender: FDA-Public Use
  Company Number: GB-B.I. PHARMACEUTICALS,INC./RIDGEFIELD-2010-UK-00618UK

PATIENT
  Sex: Female
  Weight: 73.2 kg

DRUGS (2)
  1. VIRAMUNE [Suspect]
     Indication: HIV INFECTION
     Dosage: 400 MG
     Route: 048
     Dates: start: 20060101
  2. TRUVADA [Concomitant]
     Indication: ANTIRETROVIRAL THERAPY
     Dosage: 1 ANZ
     Route: 048
     Dates: start: 20050601

REACTIONS (3)
  - ABDOMINAL PAIN [None]
  - MUSCLE RUPTURE [None]
  - PREMATURE LABOUR [None]
